FAERS Safety Report 4886797-5 (Version None)
Quarter: 2006Q1

REPORT INFORMATION
  Report Type: 
  Country: None (occurrence: None)
  Receive Date: 20060120
  Receipt Date: 20051212
  Transmission Date: 20060701
  Serious: Yes (Hospitalization)
  Sender: FDA-Public Use
  Company Number: JP-BRISTOL-MYERS SQUIBB COMPANY-13220728

PATIENT
  Age: 68 Year
  Sex: Male

DRUGS (7)
  1. MEVALOTIN [Suspect]
     Indication: HYPERLIPIDAEMIA
     Route: 048
     Dates: start: 20020802, end: 20051110
  2. RENIVACE [Concomitant]
     Indication: HYPERTENSION
     Route: 048
     Dates: start: 20010901
  3. ARTIST [Concomitant]
     Indication: HYPERTENSION
     Route: 048
     Dates: start: 20000601
  4. PANALDINE [Concomitant]
     Indication: ANGINA PECTORIS
     Route: 048
     Dates: start: 20021101
  5. BUFFERIN [Concomitant]
     Indication: ANGINA PECTORIS
     Route: 048
     Dates: start: 20010301
  6. ZYLORIC [Concomitant]
     Indication: MYOPATHY
     Route: 048
     Dates: start: 20020801
  7. GASTER [Concomitant]
     Indication: GASTRIC ULCER
     Route: 048
     Dates: start: 20000601

REACTIONS (3)
  - CELLULITIS [None]
  - RHABDOMYOLYSIS [None]
  - SKIN LESION EXCISION [None]
